FAERS Safety Report 25530823 (Version 2)
Quarter: 2025Q3

REPORT INFORMATION
  Report Type: Report from Study
  Country: CA (occurrence: CA)
  Receive Date: 20250708
  Receipt Date: 20250929
  Transmission Date: 20251020
  Serious: Yes (Other)
  Sender: TAKEDA
  Company Number: CA-TAKEDA-2025TUS060819

PATIENT
  Age: 34 Year
  Sex: Male

DRUGS (6)
  1. VEDOLIZUMAB [Suspect]
     Active Substance: VEDOLIZUMAB
     Indication: Colitis ulcerative
  2. VEDOLIZUMAB [Suspect]
     Active Substance: VEDOLIZUMAB
  3. SERTRALINE [Concomitant]
     Active Substance: SERTRALINE HYDROCHLORIDE
  4. IRON [Concomitant]
     Active Substance: IRON
     Indication: Supplementation therapy
  5. MESALAMINE [Concomitant]
     Active Substance: MESALAMINE
  6. PREDNISONE [Concomitant]
     Active Substance: PREDNISONE
     Dosage: 40 MILLIGRAM, QD
     Dates: start: 20250628

REACTIONS (1)
  - Colitis ulcerative [Not Recovered/Not Resolved]
